FAERS Safety Report 15327107 (Version 1)
Quarter: 2018Q3

REPORT INFORMATION
  Report Type: Spontaneous
  Country: US (occurrence: US)
  Receive Date: 20180823
  Receipt Date: 20180823
  Transmission Date: 20181010
  Serious: Yes (Other)
  Sender: FDA-Public Use
  Company Number: None

PATIENT
  Age: 71 Year
  Sex: Male
  Weight: 98.32 kg

DRUGS (6)
  1. ZEPATIER [Suspect]
     Active Substance: ELBASVIR\GRAZOPREVIR
  2. LEUPROLIDE (ELIGARD) 45MG [Concomitant]
  3. LIDOCAINE 5% OINT [Concomitant]
  4. NIFEDIPINE (EQV?CC) 60MG SA TAB [Concomitant]
  5. NUTRITION SUPL ENSURE/VAN PWD 400GM [Concomitant]
  6. SEVELAMER CARBONATE 800MG [Concomitant]

REACTIONS (2)
  - End stage renal disease [None]
  - Prostate cancer [None]
